FAERS Safety Report 11316804 (Version 1)
Quarter: 2015Q3

REPORT INFORMATION
  Report Type: Report from Study
  Country: US (occurrence: US)
  Receive Date: 20150728
  Receipt Date: 20150728
  Transmission Date: 20151125
  Serious: Yes (Hospitalization, Other)
  Sender: FDA-Public Use
  Company Number: US-ABBVIE-15P-163-1357373-00

PATIENT
  Sex: Female
  Weight: 66.74 kg

DRUGS (2)
  1. MOBIC [Concomitant]
     Active Substance: MELOXICAM
     Indication: FIBROMYALGIA
     Dates: start: 20150303
  2. LUPRON DEPOT [Suspect]
     Active Substance: LEUPROLIDE ACETATE
     Indication: ENDOMETRIOSIS
     Route: 058
     Dates: start: 2012

REACTIONS (4)
  - Endometriosis [Recovering/Resolving]
  - Cholecystectomy [Recovered/Resolved]
  - Tachycardia [Recovering/Resolving]
  - Adenomyosis [Recovering/Resolving]

NARRATIVE: CASE EVENT DATE: 2013
